FAERS Safety Report 19681788 (Version 1)
Quarter: 2021Q3

REPORT INFORMATION
  Report Type: Other
  Country: US (occurrence: US)
  Receive Date: 20210810
  Receipt Date: 20210810
  Transmission Date: 20211014
  Serious: Yes (Other)
  Sender: FDA-Public Use
  Company Number: US-ROCHE-2818433

PATIENT
  Age: 44 Year
  Sex: Female
  Weight: 71.28 kg

DRUGS (6)
  1. OCREVUS [Suspect]
     Active Substance: OCRELIZUMAB
     Indication: MULTIPLE SCLEROSIS
     Dosage: (PRESCRIBED AS 300 MG ON DAY 1 AND DAY 15 AND 600 MG ONCE IN 6 MONTHS)
     Route: 042
     Dates: start: 20210422
  2. BIOTIN [Concomitant]
     Active Substance: BIOTIN
  3. ALPRAZOLAM. [Concomitant]
     Active Substance: ALPRAZOLAM
  4. LOSARTAN. [Concomitant]
     Active Substance: LOSARTAN
  5. MELOXICAM. [Concomitant]
     Active Substance: MELOXICAM
  6. VITAMIN D3 [Concomitant]
     Active Substance: CHOLECALCIFEROL

REACTIONS (3)
  - Headache [Recovering/Resolving]
  - Flushing [Recovering/Resolving]
  - Throat tightness [Recovering/Resolving]

NARRATIVE: CASE EVENT DATE: 20210422
